FAERS Safety Report 5969545-7 (Version None)
Quarter: 2008Q4

REPORT INFORMATION
  Report Type: 
  Country: None (occurrence: None)
  Receive Date: 20081126
  Receipt Date: 20081115
  Transmission Date: 20090506
  Serious: Yes (Other)
  Sender: FDA-Public Use
  Company Number: US-PFIZER INC-2008068186

PATIENT
  Sex: Female
  Weight: 62.7 kg

DRUGS (9)
  1. CHANTIX [Suspect]
     Indication: SMOKING CESSATION THERAPY
     Dates: start: 20080803
  2. LYRICA [Suspect]
     Indication: FIBROMYALGIA
     Dates: start: 20080101
  3. ADVAIR HFA [Concomitant]
  4. ALBUTEROL [Concomitant]
  5. SOMA [Concomitant]
  6. VICODIN [Concomitant]
  7. KLONOPIN [Concomitant]
  8. ELAVIL [Concomitant]
  9. PROZAC [Concomitant]

REACTIONS (5)
  - CARDIAC FAILURE CONGESTIVE [None]
  - CONVULSION [None]
  - DEPRESSION [None]
  - SUICIDAL IDEATION [None]
  - WEIGHT INCREASED [None]
